FAERS Safety Report 21179692 (Version 6)
Quarter: 2022Q3

REPORT INFORMATION
  Report Type: Report from Study
  Country: US (occurrence: US)
  Receive Date: 20220805
  Receipt Date: 20220913
  Transmission Date: 20221027
  Serious: Yes (Death)
  Sender: FDA-Public Use
  Company Number: NVSC2022US175966

PATIENT
  Sex: Female
  Weight: 53.061 kg

DRUGS (4)
  1. TREPROSTINIL [Suspect]
     Active Substance: TREPROSTINIL
     Indication: Pulmonary arterial hypertension
     Dosage: 16 NANOGRAM PER KILOGRAM, CONT (16 NG/KG/MIN)
     Route: 058
     Dates: start: 20201002
  2. TREPROSTINIL [Suspect]
     Active Substance: TREPROSTINIL
     Dosage: 18 NANOGRAM PER KILOGRAM, CONT (18 NG/KG/MIN)
     Route: 058
     Dates: start: 20220322
  3. TYVASO [Concomitant]
     Active Substance: TREPROSTINIL
     Indication: Product used for unknown indication
     Dosage: UNK
     Route: 065
  4. HERBALS NOS [Concomitant]
     Indication: Product used for unknown indication
     Dosage: UNK
     Route: 065

REACTIONS (5)
  - Cardiac failure congestive [Fatal]
  - Urinary tract infection [Recovered/Resolved]
  - General physical health deterioration [Unknown]
  - Somnolence [Unknown]
  - Treatment failure [Unknown]
